FAERS Safety Report 19069081 (Version 1)
Quarter: 2021Q1

REPORT INFORMATION
  Report Type: Spontaneous
  Country: US (occurrence: US)
  Receive Date: 20210329
  Receipt Date: 20210329
  Transmission Date: 20210420
  Serious: Yes (Other)
  Sender: FDA-Public Use
  Company Number: None

PATIENT
  Sex: Female

DRUGS (2)
  1. MORPHINE SULFATE ER 15 MG [Suspect]
     Active Substance: MORPHINE SULFATE
  2. XTAMPZA [Suspect]
     Active Substance: OXYCODONE

REACTIONS (3)
  - Feeling abnormal [None]
  - Somnolence [None]
  - Therapy non-responder [None]
